FAERS Safety Report 5210732-3 (Version None)
Quarter: 2006Q4

REPORT INFORMATION
  Report Type: 
  Country: None (occurrence: None)
  Receive Date: 20061130
  Receipt Date: 20060823
  Transmission Date: 20070319
  Serious: Yes (Disabling, Other)
  Sender: FDA-Public Use
  Company Number: WAES 0608USA05462

PATIENT
  Age: 61 Year
  Sex: Female
  Weight: 40.8237 kg

DRUGS (4)
  1. FOSAMAX [Suspect]
     Indication: OSTEOPOROSIS
     Dosage: 70 MG/WKY/PO
     Route: 048
     Dates: start: 20030801, end: 20060601
  2. ACIPHEX [Concomitant]
  3. PAXIL [Concomitant]
  4. TRAZODONE HYDROCHLORIDE [Concomitant]

REACTIONS (2)
  - OSTEONECROSIS [None]
  - WEIGHT DECREASED [None]
